FAERS Safety Report 23634649 (Version 1)
Quarter: 2024Q1

REPORT INFORMATION
  Report Type: Spontaneous
  Country: FR (occurrence: FR)
  Receive Date: 20240315
  Receipt Date: 20240315
  Transmission Date: 20240410
  Serious: Yes (Other)
  Sender: FDA-Public Use
  Company Number: None

PATIENT
  Age: 50 Year
  Sex: Male

DRUGS (2)
  1. ISOFLURANE [Suspect]
     Active Substance: ISOFLURANE
     Indication: Sedation
     Dosage: UNK
     Dates: start: 20240116, end: 20240118
  2. CEFOTAXIME [Concomitant]
     Active Substance: CEFOTAXIME SODIUM
     Indication: Antibiotic therapy
     Dosage: 2 G (GRAM) DAILY (BASE)
     Route: 065
     Dates: start: 20240116, end: 20240120

REACTIONS (2)
  - Blood creatinine increased [Recovering/Resolving]
  - Generalised tonic-clonic seizure [Recovered/Resolved]

NARRATIVE: CASE EVENT DATE: 20240117
